FAERS Safety Report 8606761 (Version 4)
Quarter: 2014Q1

REPORT INFORMATION
  Report Type: Spontaneous
  Country: US (occurrence: US)
  Receive Date: 20120611
  Receipt Date: 20140128
  Transmission Date: 20141002
  Serious: Yes (Hospitalization, Disabling, Other)
  Sender: FDA-Public Use
  Company Number: US-ASTRAZENECA-2012SE34882

PATIENT
  Age: 63 Year
  Sex: Female

DRUGS (30)
  1. NEXIUM [Suspect]
     Indication: GASTROOESOPHAGEAL REFLUX DISEASE
     Route: 048
     Dates: start: 2009, end: 2011
  2. PRILOSEC [Suspect]
     Indication: GASTROOESOPHAGEAL REFLUX DISEASE
     Route: 048
  3. CIMETIDINE [Concomitant]
  4. TUMS [Concomitant]
  5. GAVISCON [Concomitant]
  6. PEPTO BISMOL [Concomitant]
  7. ROLAIDS [Concomitant]
  8. MYLANTA [Concomitant]
  9. CALCIUM [Concomitant]
     Dosage: 600MG
  10. LEVOXYL [Concomitant]
     Indication: THYROID DISORDER
  11. VIT D [Concomitant]
     Dosage: 1000
  12. ZOCOR [Concomitant]
     Indication: BLOOD CHOLESTEROL ABNORMAL
  13. ALENDRONATE [Concomitant]
     Indication: BONE DISORDER
  14. ZANAFLEX [Concomitant]
     Indication: MUSCLE RELAXANT THERAPY
  15. CLARITIN [Concomitant]
     Indication: HYPERSENSITIVITY
  16. CLARITIN [Concomitant]
     Indication: ASTHMA
  17. ZOLOFT [Concomitant]
     Indication: DEPRESSION
  18. ZOLOFT [Concomitant]
     Indication: ANXIETY
  19. AZITHROMYCIN [Concomitant]
     Dates: start: 20111130
  20. ADULT MULTIVITAMIN [Concomitant]
     Dates: start: 20100803
  21. AMOXICILLIN [Concomitant]
     Dates: start: 20111222
  22. CYMBALTA [Concomitant]
     Dates: start: 20111201
  23. GABAPENTIN [Concomitant]
     Dates: start: 20110217
  24. HYDROXYZINE PAM [Concomitant]
     Dates: start: 20111201
  25. LEVOFLOXACIN [Concomitant]
     Dates: start: 20111128
  26. LEVOTHYROXINE [Concomitant]
     Dates: start: 20110217
  27. LEVOTHYROXINE [Concomitant]
     Dates: start: 20111201
  28. MELOXICAM [Concomitant]
     Dates: start: 20110217
  29. MAXALT [Concomitant]
     Dates: start: 20111201
  30. TOPAMAX [Concomitant]
     Dates: start: 20100402

REACTIONS (17)
  - Convulsion [Unknown]
  - Mental disability [Unknown]
  - Malaise [Unknown]
  - Osteoporosis [Unknown]
  - Multiple fractures [Unknown]
  - Foot fracture [Unknown]
  - Osteopenia [Unknown]
  - Bone disorder [Unknown]
  - Bone pain [Unknown]
  - Arthritis [Unknown]
  - Calcium deficiency [Unknown]
  - Cataract [Unknown]
  - Chronic obstructive pulmonary disease [Unknown]
  - Vitamin D deficiency [Unknown]
  - Cyanosis [Unknown]
  - Depression [Unknown]
  - Arthralgia [Unknown]
